FAERS Safety Report 4577684-0 (Version None)
Quarter: 2005Q1

REPORT INFORMATION
  Report Type: 
  Country: None (occurrence: None)
  Receive Date: 20050210
  Receipt Date: 20050127
  Transmission Date: 20050727
  Serious: Yes (Hospitalization)
  Sender: FDA-Public Use
  Company Number: US-MERCK-0501USA04383

PATIENT
  Age: 42 Year
  Sex: Female

DRUGS (8)
  1. CANCIDAS [Suspect]
     Indication: FUNGAEMIA
     Route: 042
     Dates: start: 20050109, end: 20050120
  2. SINGULAIR [Concomitant]
     Indication: ASTHMA
     Route: 065
  3. ADVAIR DISKUS 100/50 [Concomitant]
     Indication: ASTHMA
     Route: 065
  4. VENTOLIN [Concomitant]
     Indication: ASTHMA
     Route: 065
  5. PREDNISONE [Concomitant]
     Indication: ASTHMA
     Route: 048
  6. NORVASC [Concomitant]
     Indication: HYPERTENSION
     Route: 065
  7. PROTONIX [Concomitant]
     Route: 065
  8. DESYREL [Concomitant]
     Route: 065

REACTIONS (2)
  - ARTHRALGIA [None]
  - SERUM SICKNESS [None]
